FAERS Safety Report 6341374-4 (Version None)
Quarter: 2009Q3

REPORT INFORMATION
  Report Type: 
  Country: None (occurrence: None)
  Receive Date: 20090901
  Receipt Date: 20090901
  Transmission Date: 20100115
  Serious: No
  Sender: FDA-Public Use
  Company Number: None

PATIENT
  Age: 62 Year
  Sex: Male

DRUGS (2)
  1. ONDANSETRON ODT TABS 8MG SUN (CARACO) PLACE 1 TABLET ON TONGUE EVERY 1 [Suspect]
     Indication: NAUSEA
     Dosage: PLACE 1 TABLET ON TONGUE EVERY 12 H PM
     Dates: start: 20090624, end: 20090626
  2. ONDANSETRON ODT TABS 8MG SUN (CARACO) PLACE 1 TABLET ON TONGUE EVERY 1 [Suspect]
     Indication: VOMITING
     Dosage: PLACE 1 TABLET ON TONGUE EVERY 12 H PM
     Dates: start: 20090624, end: 20090626

REACTIONS (2)
  - INCORRECT DOSE ADMINISTERED [None]
  - TABLET ISSUE [None]
